FAERS Safety Report 21294724 (Version 1)
Quarter: 2022Q3

REPORT INFORMATION
  Report Type: Report from Study
  Country: US (occurrence: None)
  Receive Date: 20220905
  Receipt Date: 20220905
  Transmission Date: 20221027
  Serious: Yes (Hospitalization)
  Sender: FDA-Public Use
  Company Number: 2022A304628

PATIENT
  Weight: 67.1 kg

DRUGS (1)
  1. TAGRISSO [Suspect]
     Active Substance: OSIMERTINIB
     Indication: Non-small cell lung cancer
     Route: 048
     Dates: start: 20220802

REACTIONS (4)
  - Swelling face [Unknown]
  - Stomatitis [Unknown]
  - Pruritus [Unknown]
  - Drug ineffective [Unknown]
